FAERS Safety Report 24141185 (Version 1)
Quarter: 2024Q3

REPORT INFORMATION
  Report Type: Spontaneous
  Country: US (occurrence: None)
  Receive Date: 20240725
  Receipt Date: 20240725
  Transmission Date: 20241016
  Serious: Yes (Disabling)
  Sender: Public
  Company Number: None

PATIENT
  Age: 13 Year
  Sex: Female
  Weight: 70.8 kg

DRUGS (2)
  1. COMPAZINE [Suspect]
     Active Substance: PROCHLORPERAZINE MALEATE
     Route: 042
     Dates: start: 20240504, end: 20240505
  2. PROCHLORPERAZINE [Concomitant]
     Active Substance: PROCHLORPERAZINE

REACTIONS (6)
  - Headache [None]
  - Pain [None]
  - Dizziness [None]
  - Dystonia [None]
  - Tic [None]
  - Tic [None]

NARRATIVE: CASE EVENT DATE: 20240504
